FAERS Safety Report 19711955 (Version 1)
Quarter: 2021Q3

REPORT INFORMATION
  Report Type: Spontaneous
  Country: US (occurrence: US)
  Receive Date: 20210817
  Receipt Date: 20210817
  Transmission Date: 20211014
  Serious: Yes (Hospitalization, Other)
  Sender: FDA-Public Use
  Company Number: US-SA-2021SA269018

PATIENT
  Age: 60 Year
  Sex: Female

DRUGS (1)
  1. DUPIXENT [Suspect]
     Active Substance: DUPILUMAB
     Indication: DERMATITIS ATOPIC
     Dosage: 2 DF, 1X
     Dates: start: 20210728, end: 20210728

REACTIONS (7)
  - Pyrexia [Not Recovered/Not Resolved]
  - Infection [Unknown]
  - Headache [Unknown]
  - Serum sickness [Unknown]
  - Cellulitis [Unknown]
  - Hypertension [Unknown]
  - Drug hypersensitivity [Unknown]

NARRATIVE: CASE EVENT DATE: 20210807
